FAERS Safety Report 9709990 (Version 2)
Quarter: 2013Q4

REPORT INFORMATION
  Report Type: Report from Study
  Country: DE (occurrence: DE)
  Receive Date: 20131126
  Receipt Date: 20131126
  Transmission Date: 20140711
  Serious: Yes (Other)
  Sender: FDA-Public Use
  Company Number: DE-BAYER-2013-128998

PATIENT
  Sex: Male
  Weight: 92.97 kg

DRUGS (3)
  1. BETAFERON [Suspect]
     Indication: MULTIPLE SCLEROSIS
  2. IBUPROFEN [Suspect]
     Dosage: 800 MG, UNK
     Route: 048
  3. NOVALGIN [Concomitant]
     Dosage: 30 GTT, TID
     Route: 048

REACTIONS (7)
  - Myalgia [None]
  - Myosclerosis [None]
  - Gait disturbance [None]
  - Muscle spasticity [None]
  - Drug dose omission [None]
  - Walking distance test abnormal [None]
  - Depression [None]
